FAERS Safety Report 6593938-0 (Version None)
Quarter: 2010Q1

REPORT INFORMATION
  Report Type: 
  Country: None (occurrence: None)
  Receive Date: 20100222
  Receipt Date: 20100218
  Transmission Date: 20100710
  Serious: Yes (Death, Other)
  Sender: FDA-Public Use
  Company Number: JP-JNJFOC-20100102797

PATIENT
  Sex: Female

DRUGS (7)
  1. RISPERDAL [Suspect]
     Indication: ACUTE PSYCHOSIS
     Route: 048
  2. LORAZEPAM [Suspect]
     Indication: ACUTE PSYCHOSIS
     Route: 048
  3. WYPAX [Suspect]
     Indication: DRUG USE FOR UNKNOWN INDICATION
     Route: 048
  4. WYPAX [Suspect]
     Route: 048
  5. LENDORMIN [Concomitant]
     Route: 048
  6. ROHYPNOL [Concomitant]
     Route: 048
  7. ZYPREXA [Concomitant]
     Route: 048

REACTIONS (6)
  - CARDIO-RESPIRATORY ARREST [None]
  - HYPERVENTILATION [None]
  - PYREXIA [None]
  - SPEECH DISORDER [None]
  - STATUS EPILEPTICUS [None]
  - UNRESPONSIVE TO STIMULI [None]
